FAERS Safety Report 17201901 (Version 2)
Quarter: 2020Q1

REPORT INFORMATION
  Report Type: Report from Study
  Country: US (occurrence: US)
  Receive Date: 20191226
  Receipt Date: 20200115
  Transmission Date: 20200409
  Serious: Yes (Other)
  Sender: FDA-Public Use
  Company Number: US-AMGEN-USASL2019192246

PATIENT
  Age: 59 Year
  Sex: Female

DRUGS (1)
  1. REPATHA [Suspect]
     Active Substance: EVOLOCUMAB
     Indication: BLOOD CHOLESTEROL INCREASED
     Dosage: 140 MILLIGRAM, Q2WK
     Route: 065
     Dates: start: 2019

REACTIONS (10)
  - Device use error [Unknown]
  - Heart rate increased [Unknown]
  - Accidental exposure to product [Unknown]
  - Headache [Unknown]
  - Urinary tract infection [Unknown]
  - Blood pressure increased [Unknown]
  - Bronchitis [Not Recovered/Not Resolved]
  - Wisdom teeth removal [Unknown]
  - Dyspnoea [Unknown]
  - Nausea [Unknown]

NARRATIVE: CASE EVENT DATE: 2019
